FAERS Safety Report 18628703 (Version 1)
Quarter: 2020Q4

REPORT INFORMATION
  Report Type: Spontaneous
  Country: GR (occurrence: GR)
  Receive Date: 20201217
  Receipt Date: 20201217
  Transmission Date: 20210114
  Serious: Yes (Other)
  Sender: FDA-Public Use
  Company Number: GR-PFIZER INC-2020493858

PATIENT
  Age: 44 Year
  Sex: Male

DRUGS (2)
  1. LEXOTANIL [Suspect]
     Active Substance: BROMAZEPAM
     Indication: SUSPICIOUSNESS
     Dosage: UNK
     Route: 048
  2. XANAX [Suspect]
     Active Substance: ALPRAZOLAM
     Dosage: UNK

REACTIONS (1)
  - Homicide [Recovered/Resolved]
